FAERS Safety Report 8998087 (Version 1)
Quarter: 2013Q1

REPORT INFORMATION
  Report Type: Spontaneous
  Country: US (occurrence: US)
  Receive Date: 20130104
  Receipt Date: 20130104
  Transmission Date: 20140127
  Serious: Yes (Other)
  Sender: FDA-Public Use
  Company Number: US-COVIDIEN/TYCO HEALTHCARE/MALLINCKRODT-T201203344

PATIENT
  Age: 59 Year
  Sex: Female

DRUGS (5)
  1. OPTIRAY [Suspect]
     Indication: COMPUTERISED TOMOGRAM
     Dosage: 85 ML, SINGLE
     Route: 042
     Dates: start: 20120730, end: 20120730
  2. LEVOTHYROXINE [Concomitant]
  3. ASPIRIN [Concomitant]
     Dosage: UNK
  4. NITROFURAN [Concomitant]
     Dosage: UNK
  5. METOPROLOL [Concomitant]
     Dosage: UNK

REACTIONS (2)
  - Throat tightness [Recovered/Resolved]
  - Urticaria [Recovered/Resolved]
